FAERS Safety Report 8830195 (Version 1)
Quarter: 2012Q4

REPORT INFORMATION
  Report Type: Spontaneous
  Country: US (occurrence: None)
  Receive Date: 20121005
  Receipt Date: 20121005
  Transmission Date: 20130627
  Serious: Yes (Other)
  Sender: FDA-Public Use
  Company Number: None

PATIENT
  Sex: Female
  Weight: 58.2 kg

DRUGS (1)
  1. PICATO [Suspect]
     Indication: ACTINIC KERATOSIS
     Dosage: picato 0.05% 1x daily for 2 days
     Dates: start: 20120919

REACTIONS (4)
  - Drug dispensing error [None]
  - Application site swelling [None]
  - Application site vesicles [None]
  - Application site erythema [None]
